FAERS Safety Report 24076009 (Version 1)
Quarter: 2024Q3

REPORT INFORMATION
  Report Type: Spontaneous
  Country: JP (occurrence: JP)
  Receive Date: 20240710
  Receipt Date: 20240710
  Transmission Date: 20241016
  Serious: Yes (Other)
  Sender: RADIUS PHARM
  Company Number: JP-RADIUS HEALTH INC.-2024JP005070

PATIENT
  Age: 84 Year
  Sex: Female

DRUGS (3)
  1. ABALOPARATIDE [Suspect]
     Active Substance: ABALOPARATIDE
     Indication: Osteoporosis
     Dosage: 80 MICROGRAM
     Route: 058
     Dates: start: 20240530, end: 20240530
  2. PREGABALIN [Concomitant]
     Active Substance: PREGABALIN
     Indication: Intervertebral discitis
     Route: 048
  3. LIMAPROST [Concomitant]
     Active Substance: LIMAPROST
     Indication: Intervertebral discitis
     Route: 048

REACTIONS (1)
  - Blood pressure decreased [Recovering/Resolving]

NARRATIVE: CASE EVENT DATE: 20240530
